FAERS Safety Report 8866964 (Version 1)
Quarter: 2012Q4

REPORT INFORMATION
  Report Type: 
  Country: US (occurrence: US)
  Receive Date: 20121025
  Receipt Date: 20121025
  Transmission Date: 20130627
  Serious: No
  Sender: FDA-Public Use
  Company Number: US-AMGEN-USASP2012014162

PATIENT
  Sex: Male
  Weight: 95.24 kg

DRUGS (4)
  1. ENBREL [Suspect]
     Indication: PRODUCT USED FOR UNKNOWN INDICATION
     Dosage: 50 mg, qwk
     Route: 058
  2. COUMADIN                           /00014802/ [Concomitant]
     Dosage: 7.5 mg, UNK
  3. CELEBREX [Concomitant]
     Dosage: 100 mg, UNK
  4. VALTREX [Concomitant]

REACTIONS (2)
  - Rash [Unknown]
  - Injection site pruritus [Unknown]
